FAERS Safety Report 19630535 (Version 1)
Quarter: 2021Q3

REPORT INFORMATION
  Report Type: Spontaneous
  Country: BH (occurrence: BH)
  Receive Date: 20210729
  Receipt Date: 20210729
  Transmission Date: 20211014
  Serious: Yes (Other)
  Sender: FDA-Public Use
  Company Number: BH-UCBSA-2021035480

PATIENT
  Age: 21 Month
  Sex: Female
  Weight: 11 kg

DRUGS (16)
  1. LEVETIRACETAM. [Suspect]
     Active Substance: LEVETIRACETAM
     Dosage: 60 MG/KG/D
  2. LEVETIRACETAM. [Suspect]
     Active Substance: LEVETIRACETAM
     Indication: GENERALISED TONIC-CLONIC SEIZURE
     Dosage: 40 MG/KG
  3. MIDAZOLAM. [Suspect]
     Active Substance: MIDAZOLAM
     Indication: GENERALISED TONIC-CLONIC SEIZURE
     Dosage: 0.1MG/KG
     Route: 042
  4. MIDAZOLAM. [Suspect]
     Active Substance: MIDAZOLAM
     Dosage: 30 MG/KG/D
  5. PHENOBARBITONE SODIUM [Suspect]
     Active Substance: PHENOBARBITAL SODIUM
     Indication: GENERALISED TONIC-CLONIC SEIZURE
     Dosage: 20MG/KG
  6. MIDAZOLAM. [Suspect]
     Active Substance: MIDAZOLAM
     Dosage: 7 ?G/KG/MIN
  7. MIDAZOLAM. [Suspect]
     Active Substance: MIDAZOLAM
     Dosage: DOSE REDUCED
  8. PHENYTOIN. [Suspect]
     Active Substance: PHENYTOIN
     Indication: GENERALISED TONIC-CLONIC SEIZURE
     Dosage: 30MG/KG
  9. VANCOMYCIN [Concomitant]
     Active Substance: VANCOMYCIN
     Indication: PRODUCT USED FOR UNKNOWN INDICATION
     Dosage: UNKNOWN DOSE
  10. IMMUNOGLOBULIN G HUMAN [Concomitant]
     Active Substance: HUMAN IMMUNOGLOBULIN G
     Indication: ATAXIA
     Dosage: 1 G/KG
     Route: 042
  11. THIOPENTAL [Concomitant]
     Active Substance: THIOPENTAL
     Dosage: UNKNOWN DOSE
  12. CEFTRIAXONE. [Concomitant]
     Active Substance: CEFTRIAXONE
     Indication: PRODUCT USED FOR UNKNOWN INDICATION
     Dosage: UNKNOWN DOSE
     Route: 042
  13. OSELTAMIVIR [Concomitant]
     Active Substance: OSELTAMIVIR
     Indication: H1N1 INFLUENZA
     Dosage: UNKNOWN DOSE
  14. TOPIRAMATE. [Concomitant]
     Active Substance: TOPIRAMATE
     Indication: SEIZURE
     Dosage: 3 MG/KG/D
  15. THIOPENTAL [Concomitant]
     Active Substance: THIOPENTAL
     Indication: SEIZURE
     Dosage: 4 MG/KG
     Route: 042
  16. ACYCLOVIR [ACICLOVIR] [Concomitant]
     Active Substance: ACYCLOVIR
     Indication: PRODUCT USED FOR UNKNOWN INDICATION
     Dosage: UNKNOWN DOSE

REACTIONS (4)
  - Status epilepticus [Recovered/Resolved]
  - Multiple-drug resistance [Unknown]
  - Ataxia [Recovered/Resolved]
  - Dyskinesia [Recovered/Resolved]
